FAERS Safety Report 25654606 (Version 1)
Quarter: 2025Q3

REPORT INFORMATION
  Report Type: Spontaneous
  Country: US (occurrence: None)
  Receive Date: 20250806
  Receipt Date: 20250806
  Transmission Date: 20251021
  Serious: Yes (Death)
  Sender: FDA-CTU
  Company Number: None

PATIENT
  Age: 66 Year
  Sex: Male

DRUGS (11)
  1. UNSPECIFIED INGREDIENT [Suspect]
     Active Substance: UNSPECIFIED INGREDIENT
  2. ATORVASTATIN [Concomitant]
     Active Substance: ATORVASTATIN
  3. TAMSULOSIN [Concomitant]
     Active Substance: TAMSULOSIN
  4. ETRAVIRINE [Concomitant]
     Active Substance: ETRAVIRINE
  5. arunavir [Concomitant]
  6. MARAVIROC [Concomitant]
     Active Substance: MARAVIROC
  7. ISENTRESS [Concomitant]
     Active Substance: RALTEGRAVIR POTASSIUM
  8. FENOFIBRATE [Concomitant]
     Active Substance: FENOFIBRATE
  9. ALLOPURINOL [Concomitant]
     Active Substance: ALLOPURINOL
  10. METOPROLOL SUCCINATE [Concomitant]
     Active Substance: METOPROLOL SUCCINATE
  11. NIACIN [Concomitant]
     Active Substance: NIACIN

REACTIONS (2)
  - Cholangiocarcinoma [None]
  - Metastases to liver [None]

NARRATIVE: CASE EVENT DATE: 20250801
